FAERS Safety Report 5063557-6 (Version None)
Quarter: 2006Q3

REPORT INFORMATION
  Report Type: 
  Country: None (occurrence: None)
  Receive Date: 20060727
  Receipt Date: 20060524
  Transmission Date: 20061208
  Serious: Yes (Hospitalization)
  Sender: FDA-Public Use
  Company Number: FR-AMGEN-UK180626

PATIENT
  Age: 54 Year
  Sex: Male

DRUGS (5)
  1. NEUPOGEN [Suspect]
     Indication: PRE-EXISTING DISEASE
     Route: 058
     Dates: start: 20060310, end: 20060313
  2. RENITEC [Suspect]
     Route: 048
     Dates: start: 20060310, end: 20060313
  3. EPREX [Suspect]
     Route: 058
     Dates: start: 20060310, end: 20060313
  4. BURINEX [Concomitant]
     Route: 065
  5. PRAVASTATIN [Concomitant]
     Route: 048

REACTIONS (1)
  - ANGIONEUROTIC OEDEMA [None]
